FAERS Safety Report 5994070-7 (Version None)
Quarter: 2008Q4

REPORT INFORMATION
  Report Type: 
  Country: None (occurrence: None)
  Receive Date: 20081212
  Receipt Date: 20080831
  Transmission Date: 20090506
  Serious: No
  Sender: FDA-Public Use
  Company Number: US-ABBOTT-08P-163-0473367-00

PATIENT
  Sex: Male
  Weight: 61.29 kg

DRUGS (8)
  1. HUMIRA [Suspect]
     Indication: CROHN'S DISEASE
     Dosage: ONCE
     Dates: start: 20080829, end: 20080829
  2. HUMIRA [Suspect]
     Dosage: ON THE 15TH DAY
  3. CETIRIZINE HYDROCHLORIDE [Concomitant]
     Indication: DRUG USE FOR UNKNOWN INDICATION
  4. CIMETIDINE [Concomitant]
     Indication: DRUG USE FOR UNKNOWN INDICATION
  5. MONTELUKAST SODIUM [Concomitant]
     Indication: DRUG USE FOR UNKNOWN INDICATION
  6. OMEPRAZOLE MAGNESIUM [Concomitant]
     Indication: DRUG USE FOR UNKNOWN INDICATION
  7. MESALAMINE [Concomitant]
     Indication: DRUG USE FOR UNKNOWN INDICATION
  8. ALBUTEROL SULFATE [Concomitant]
     Indication: DRUG USE FOR UNKNOWN INDICATION

REACTIONS (8)
  - ARTHRALGIA [None]
  - BLOOD URINE PRESENT [None]
  - CHILLS [None]
  - LOCAL SWELLING [None]
  - PAIN [None]
  - PAIN OF SKIN [None]
  - PYREXIA [None]
  - RASH [None]
